FAERS Safety Report 12219688 (Version 1)
Quarter: 2016Q1

REPORT INFORMATION
  Report Type: Report from Study
  Country: US (occurrence: US)
  Receive Date: 20160330
  Receipt Date: 20160330
  Transmission Date: 20160526
  Serious: No
  Sender: FDA-Public Use
  Company Number: PHEH2015US006851

PATIENT
  Sex: Female

DRUGS (3)
  1. AFINITOR [Suspect]
     Active Substance: EVEROLIMUS
     Indication: PRODUCT USED FOR UNKNOWN INDICATION
     Dosage: 10 MG, QD
     Route: 048
     Dates: start: 20150127
  2. KEFLEX [Concomitant]
     Active Substance: CEPHALEXIN
     Indication: PRODUCT USED FOR UNKNOWN INDICATION
     Route: 065
  3. AFINITOR [Suspect]
     Active Substance: EVEROLIMUS
     Dosage: 10 MG, QOD
     Route: 048
     Dates: start: 20150305

REACTIONS (25)
  - Musculoskeletal chest pain [Unknown]
  - Scab [Unknown]
  - Pain in extremity [Unknown]
  - Dyspnoea [Unknown]
  - Breast injury [Unknown]
  - Insomnia [Unknown]
  - Oral pain [Unknown]
  - Back pain [Unknown]
  - Abdominal pain upper [Unknown]
  - Breast pain [Unknown]
  - Bone pain [Unknown]
  - Rash generalised [Unknown]
  - Chest discomfort [Unknown]
  - Muscle spasms [Unknown]
  - Feeling abnormal [Unknown]
  - Nasal discomfort [Unknown]
  - Dehydration [Unknown]
  - Rash pruritic [Unknown]
  - Abdominal pain lower [Unknown]
  - Abdominal pain [Unknown]
  - Pain of skin [Unknown]
  - Groin pain [Unknown]
  - Anxiety [Unknown]
  - Erythema [Unknown]
  - Localised infection [Unknown]
